FAERS Safety Report 5890195-5 (Version None)
Quarter: 2008Q3

REPORT INFORMATION
  Report Type: 
  Country: None (occurrence: None)
  Receive Date: 20080919
  Receipt Date: 20080908
  Transmission Date: 20090109
  Serious: Yes (Hospitalization)
  Sender: FDA-Public Use
  Company Number: DE-PFIZER INC-2008075677

PATIENT
  Sex: Male
  Weight: 96 kg

DRUGS (2)
  1. SUTENT [Suspect]
     Indication: METASTATIC RENAL CELL CARCINOMA
     Route: 048
     Dates: start: 20071128
  2. MORPHINE [Concomitant]

REACTIONS (2)
  - CONSTIPATION [None]
  - ILEUS [None]
